FAERS Safety Report 14690104 (Version 2)
Quarter: 2018Q2

REPORT INFORMATION
  Report Type: Spontaneous
  Country: GB (occurrence: GB)
  Receive Date: 20180328
  Receipt Date: 20180406
  Transmission Date: 20180711
  Serious: Yes (Other)
  Sender: FDA-Public Use
  Company Number: GB-MYLANLABS-2018M1014258

PATIENT
  Age: 65 Year
  Sex: Female

DRUGS (1)
  1. COLIFOAM 10% W/W RECTAL FOAM [Suspect]
     Active Substance: HYDROCORTISONE
     Indication: COLITIS ULCERATIVE
     Dosage: UNK UNK, BID
     Route: 054
     Dates: end: 201712

REACTIONS (3)
  - Drug dose omission [Unknown]
  - Colitis ulcerative [Not Recovered/Not Resolved]
  - Product availability issue [Unknown]

NARRATIVE: CASE EVENT DATE: 201712
